FAERS Safety Report 5767492-7 (Version None)
Quarter: 2008Q2

REPORT INFORMATION
  Report Type: 
  Country: None (occurrence: None)
  Receive Date: 20080612
  Receipt Date: 20080604
  Transmission Date: 20081010
  Serious: Yes (Hospitalization, Other)
  Sender: FDA-Public Use
  Company Number: US-ELI_LILLY_AND_COMPANY-US200806001033

PATIENT
  Sex: Female

DRUGS (5)
  1. FORTEO [Suspect]
     Dates: start: 20080508, end: 20080601
  2. FORTEO [Suspect]
     Dates: start: 20080601
  3. TRAMADOL HCL [Concomitant]
  4. DIURETICS [Concomitant]
  5. GLIPIZIDE [Concomitant]

REACTIONS (6)
  - ARTHRALGIA [None]
  - BLOOD GLUCOSE DECREASED [None]
  - HYPERHIDROSIS [None]
  - LOSS OF CONSCIOUSNESS [None]
  - MUSCLE SPASMS [None]
  - MUSCULAR WEAKNESS [None]
